FAERS Safety Report 6133634-7 (Version None)
Quarter: 2009Q1

REPORT INFORMATION
  Report Type: 
  Country: None (occurrence: None)
  Receive Date: 20090324
  Receipt Date: 20090312
  Transmission Date: 20090719
  Serious: Yes (Hospitalization, Disabling)
  Sender: FDA-Public Use
  Company Number: 1000003251

PATIENT
  Age: 83 Year
  Sex: Female
  Weight: 53 kg

DRUGS (7)
  1. MEMANTINE HCL [Suspect]
     Indication: DEMENTIA ALZHEIMER'S TYPE
     Dosage: 20 MG (20 MG,  1 IN 1 D), ORAL
     Route: 048
     Dates: start: 20050915, end: 20081207
  2. ISOSORSIDE DINITRATE [Concomitant]
  3. PRAVASTATIN SODIUM [Concomitant]
  4. LANSOPRAZOLE [Concomitant]
  5. ALENDRONATE SODIUM [Concomitant]
  6. FAMOTIDINE [Concomitant]
  7. MAGNESIUM OXIDE [Concomitant]

REACTIONS (14)
  - APNOEA [None]
  - BLOOD PRESSURE INCREASED [None]
  - CHEYNE-STOKES RESPIRATION [None]
  - DYSKINESIA [None]
  - DYSPHAGIA [None]
  - EMBOLIC CEREBRAL INFARCTION [None]
  - FALL [None]
  - FIBRIN D DIMER INCREASED [None]
  - HEART RATE IRREGULAR [None]
  - HEAT ILLNESS [None]
  - INTERNATIONAL NORMALISED RATIO INCREASED [None]
  - OEDEMA [None]
  - SPINAL COMPRESSION FRACTURE [None]
  - URINE OUTPUT DECREASED [None]
